FAERS Safety Report 5806960-6 (Version None)
Quarter: 2008Q3

REPORT INFORMATION
  Report Type: 
  Country: None (occurrence: None)
  Receive Date: 20080711
  Receipt Date: 20080701
  Transmission Date: 20090109
  Serious: Yes (Other)
  Sender: FDA-Public Use
  Company Number: CN-JNJFOC-20080700526

PATIENT
  Age: 25 Year
  Sex: Male

DRUGS (2)
  1. SPORANOX [Suspect]
     Indication: ONYCHOMYCOSIS
     Route: 048
  2. CEPHALEXIN [Interacting]
     Indication: NASOPHARYNGITIS
     Route: 048

REACTIONS (4)
  - DRUG HYPERSENSITIVITY [None]
  - DRUG INTERACTION [None]
  - NAUSEA [None]
  - VOMITING [None]
